FAERS Safety Report 9972028 (Version 1)
Quarter: 2014Q1

REPORT INFORMATION
  Report Type: Report from Study
  Country: US (occurrence: US)
  Receive Date: 20140306
  Receipt Date: 20140306
  Transmission Date: 20141002
  Serious: No
  Sender: FDA-Public Use
  Company Number: US-ABBVIE-13P-163-1148484-00

PATIENT
  Age: 56 Year
  Sex: Female

DRUGS (8)
  1. HUMIRA [Suspect]
     Indication: RHEUMATOID ARTHRITIS
     Dates: start: 20130916
  2. GABAPENTIN [Concomitant]
     Indication: NEUROPATHY PERIPHERAL
  3. LEFLUNOMIDE [Concomitant]
     Indication: ARTHRITIS
  4. TRIAMTERENE [Concomitant]
     Indication: HYPERTENSION
  5. BUPROPION [Concomitant]
     Indication: DEPRESSION
  6. VITAMIN D [Concomitant]
     Indication: PRODUCT USED FOR UNKNOWN INDICATION
  7. PRILOSEC [Concomitant]
     Indication: PRODUCT USED FOR UNKNOWN INDICATION
  8. HYDROCODONE [Concomitant]
     Indication: PAIN

REACTIONS (1)
  - Injection site pain [Recovering/Resolving]
